FAERS Safety Report 18717181 (Version 1)
Quarter: 2021Q1

REPORT INFORMATION
  Report Type: Spontaneous
  Country: US (occurrence: US)
  Receive Date: 20210108
  Receipt Date: 20210108
  Transmission Date: 20210419
  Serious: Yes (Other)
  Sender: FDA-Public Use
  Company Number: None

PATIENT
  Age: 47 Year
  Sex: Female
  Weight: 68.45 kg

DRUGS (9)
  1. AMITRYPTYLINE [Concomitant]
     Active Substance: AMITRIPTYLINE
  2. VITAMIN C [Concomitant]
     Active Substance: ASCORBIC ACID
  3. ACETAMINOPHEN. [Concomitant]
     Active Substance: ACETAMINOPHEN
  4. LACTOBACILLUS [Concomitant]
     Active Substance: LACTOBACILLUS ACIDOPHILUS
  5. VITAMIN D3 [Concomitant]
     Active Substance: CHOLECALCIFEROL
  6. ELDERBERRY [Concomitant]
     Active Substance: HERBALS
  7. BACLOFEN. [Concomitant]
     Active Substance: BACLOFEN
  8. IMATINIB. [Suspect]
     Active Substance: IMATINIB MESYLATE
     Indication: CHRONIC MYELOID LEUKAEMIA
     Route: 048
     Dates: start: 20201111
  9. TURMERIC [Concomitant]
     Active Substance: HERBALS\TURMERIC

REACTIONS (2)
  - Bone pain [None]
  - Nausea [None]

NARRATIVE: CASE EVENT DATE: 20210108
